FAERS Safety Report 13016080 (Version 1)
Quarter: 2016Q4

REPORT INFORMATION
  Report Type: Spontaneous
  Country: US (occurrence: US)
  Receive Date: 20161212
  Receipt Date: 20161212
  Transmission Date: 20170207
  Serious: No
  Sender: FDA-Public Use
  Company Number: US-AMGEN-USASP2016173378

PATIENT
  Sex: Male
  Weight: 96.6 kg

DRUGS (2)
  1. ENBREL [Suspect]
     Active Substance: ETANERCEPT
     Indication: PSORIASIS
     Dosage: 50 MG, QWK
     Route: 065
  2. SPIRULINA [Concomitant]
     Active Substance: SPIRULINA
     Dosage: UNK

REACTIONS (2)
  - Psoriasis [Unknown]
  - Drug dose omission [Unknown]
